FAERS Safety Report 23350210 (Version 3)
Quarter: 2024Q2

REPORT INFORMATION
  Report Type: Spontaneous
  Country: US (occurrence: US)
  Receive Date: 20231229
  Receipt Date: 20240414
  Transmission Date: 20240716
  Serious: No
  Sender: FDA-Public Use
  Company Number: US-SA-SAC20231221000083

PATIENT
  Age: 20 Year
  Sex: Female

DRUGS (3)
  1. DUPIXENT [Suspect]
     Active Substance: DUPILUMAB
     Indication: Psoriasis
     Dosage: 600 MG, 1X
     Route: 058
     Dates: start: 20231006, end: 20231006
  2. DUPIXENT [Suspect]
     Active Substance: DUPILUMAB
     Indication: Eczema
     Dosage: 300 MG, QOW
     Route: 058
     Dates: start: 20231020, end: 202312
  3. DUPIXENT [Suspect]
     Active Substance: DUPILUMAB
     Dosage: 300 MG, QOW
     Route: 058
     Dates: start: 202401

REACTIONS (20)
  - Rash erythematous [Recovering/Resolving]
  - Sleep disorder due to a general medical condition [Recovering/Resolving]
  - Swelling face [Recovering/Resolving]
  - Periorbital swelling [Recovering/Resolving]
  - Rash pruritic [Recovering/Resolving]
  - Swelling face [Recovering/Resolving]
  - Condition aggravated [Recovering/Resolving]
  - Skin irritation [Recovering/Resolving]
  - Condition aggravated [Recovering/Resolving]
  - Weight increased [Recovering/Resolving]
  - Eye swelling [Recovering/Resolving]
  - Pruritus [Recovering/Resolving]
  - Erythema [Recovering/Resolving]
  - Ocular hyperaemia [Recovering/Resolving]
  - Drug hypersensitivity [Recovered/Resolved]
  - Eczema [Unknown]
  - Rash [Unknown]
  - Off label use [Unknown]
  - Therapeutic response shortened [Unknown]
  - Product use in unapproved indication [Unknown]

NARRATIVE: CASE EVENT DATE: 20230101
